FAERS Safety Report 23560119 (Version 1)
Quarter: 2024Q1

REPORT INFORMATION
  Report Type: Spontaneous
  Country: ES (occurrence: None)
  Receive Date: 20240223
  Receipt Date: 20240223
  Transmission Date: 20240410
  Serious: Yes (Hospitalization)
  Sender: FDA-Public Use
  Company Number: 2024A045304

PATIENT
  Sex: Female

DRUGS (6)
  1. ROSUVASTATIN [Suspect]
     Active Substance: ROSUVASTATIN
     Indication: Dyslipidaemia
     Dosage: 10 MILLIGRAM, 1/DAY
     Dates: start: 20230829, end: 20230919
  2. TUKYSA [Suspect]
     Active Substance: TUCATINIB
     Indication: Breast neoplasm
     Dosage: 300 MILLIGRAM, EVERY 12 HRS
     Dates: start: 20230830, end: 20230926
  3. CAPECITABINE [Suspect]
     Active Substance: CAPECITABINE
     Indication: Breast neoplasm
     Dosage: UNK
     Dates: start: 20230830, end: 20230919
  4. TRASTUZUMAB [Suspect]
     Active Substance: TRASTUZUMAB
     Indication: Breast neoplasm
     Dosage: UNK
     Dates: start: 20230830, end: 20230919
  5. SULFAMETHOXAZOLE\TRIMETHOPRIM [Suspect]
     Active Substance: SULFAMETHOXAZOLE\TRIMETHOPRIM
     Indication: Product used for unknown indication
     Dosage: 160 MILLIGRAM
     Dates: start: 20230515, end: 20230926
  6. MIRTAZAPINE [Concomitant]
     Active Substance: MIRTAZAPINE
     Indication: Product used for unknown indication
     Dosage: 15 MILLIGRAM, 1/DAY
     Dates: start: 20170715, end: 20230926

REACTIONS (2)
  - Hepatocellular injury [Recovered/Resolved]
  - Hyperbilirubinaemia [Recovered/Resolved]

NARRATIVE: CASE EVENT DATE: 20230919
